FAERS Safety Report 21052749 (Version 4)
Quarter: 2023Q1

REPORT INFORMATION
  Report Type: Report from Study
  Country: US (occurrence: US)
  Receive Date: 20220707
  Receipt Date: 20230227
  Transmission Date: 20230417
  Serious: Yes (Hospitalization, Other)
  Sender: FDA-Public Use
  Company Number: US-BRISTOL-MYERS SQUIBB COMPANY-2022-066297

PATIENT
  Age: 71 Year
  Sex: Female
  Weight: 68.49 kg

DRUGS (14)
  1. ELIQUIS [Suspect]
     Active Substance: APIXABAN
     Indication: Thrombosis
  2. ELIQUIS [Suspect]
     Active Substance: APIXABAN
     Indication: Deep vein thrombosis
     Route: 048
  3. GABAPENTIN [Suspect]
     Active Substance: GABAPENTIN
     Indication: Seizure
  4. DEPAKOTE [Suspect]
     Active Substance: DIVALPROEX SODIUM
     Indication: Epilepsy
  5. PHENYTOIN [Suspect]
     Active Substance: PHENYTOIN
     Indication: Seizure
     Dosage: 3 IN 1 DAY
  6. DILANTIN [Suspect]
     Active Substance: PHENYTOIN
     Indication: Epilepsy
  7. PRIMIDONE [Concomitant]
     Active Substance: PRIMIDONE
     Indication: Seizure
  8. ACETAZOLAMIDE [Concomitant]
     Active Substance: ACETAZOLAMIDE
     Indication: Epilepsy
  9. DIVALPROEX SODIUM [Concomitant]
     Active Substance: DIVALPROEX SODIUM
     Indication: Epilepsy
     Dosage: EXTENDED RELEASE, 4 IN 1 DAY
  10. DIVALPROEX SODIUM [Concomitant]
     Active Substance: DIVALPROEX SODIUM
     Dosage: EXTENDED RELEASE, 4 IN 1 DAY
  11. COVID-19 VACCINE [Concomitant]
     Indication: Product used for unknown indication
  12. CHOLECALCIFEROL [Concomitant]
     Active Substance: CHOLECALCIFEROL
     Indication: Product used for unknown indication
  13. CALCIUM;MAGNESIUM [Concomitant]
     Indication: Product used for unknown indication
  14. ANASTROZOLE [Concomitant]
     Active Substance: ANASTROZOLE
     Indication: Product used for unknown indication

REACTIONS (8)
  - Dysphagia [Unknown]
  - Cerebral haemorrhage [Unknown]
  - Headache [Unknown]
  - Seizure [Unknown]
  - Dysarthria [Unknown]
  - Decreased appetite [Unknown]
  - Aphasia [Unknown]
  - Pain in extremity [Unknown]
